FAERS Safety Report 23410359 (Version 1)
Quarter: 2024Q1

REPORT INFORMATION
  Report Type: Spontaneous
  Country: JP (occurrence: JP)
  Receive Date: 20240117
  Receipt Date: 20240117
  Transmission Date: 20240410
  Serious: Yes (Death, Other)
  Sender: FDA-Public Use
  Company Number: JP-AMGEN-JPNSP2024008899

PATIENT
  Sex: Male

DRUGS (1)
  1. BLINCYTO [Suspect]
     Active Substance: BLINATUMOMAB
     Indication: Product used for unknown indication
     Dosage: UNK, IV DRIP INFUSION
     Route: 042
     Dates: start: 202312, end: 202312

REACTIONS (2)
  - Death [Fatal]
  - Hydrocephalus [Unknown]

NARRATIVE: CASE EVENT DATE: 20231201
